FAERS Safety Report 8594770-9 (Version None)
Quarter: 2012Q3

REPORT INFORMATION
  Report Type: 
  Country: None (occurrence: None)
  Receive Date: 20120815
  Receipt Date: 20120801
  Transmission Date: 20120928
  Serious: Yes (Other)
  Sender: FDA-Public Use
  Company Number: US-UCBSA-062533

PATIENT
  Age: 36 Year
  Sex: Female
  Weight: 71.21 kg

DRUGS (3)
  1. HUMIRA [Suspect]
  2. HUMIRA [Suspect]
  3. CIMZIA [Suspect]
     Indication: CROHN'S DISEASE
     Dosage: 2 INJECTS PER DOSE EVERY 4 WEEKS
     Dates: start: 20110510, end: 20120501

REACTIONS (2)
  - RASH [None]
  - CROHN'S DISEASE [None]
